FAERS Safety Report 9983652 (Version 2)
Quarter: 2014Q1

REPORT INFORMATION
  Report Type: Report from Study
  Country: US (occurrence: US)
  Receive Date: 20140307
  Receipt Date: 20140307
  Transmission Date: 20141002
  Serious: Yes (Hospitalization, Other)
  Sender: FDA-Public Use
  Company Number: US-ABBVIE-14P-163-1206970-00

PATIENT
  Age: 62 Year
  Sex: Male
  Weight: 140.74 kg

DRUGS (20)
  1. HUMIRA [Suspect]
     Indication: RHEUMATOID ARTHRITIS
     Dates: end: 2012
  2. HUMIRA [Suspect]
     Dates: start: 20140129, end: 20140212
  3. PLAQUENIL [Concomitant]
     Indication: RHEUMATOID ARTHRITIS
     Dates: start: 2012
  4. LANTUS [Concomitant]
     Indication: DIABETES MELLITUS
  5. NOVOLOG [Concomitant]
     Indication: DIABETES MELLITUS
  6. PROTONIX [Concomitant]
     Indication: GASTROOESOPHAGEAL REFLUX DISEASE
  7. LOTREL [Concomitant]
     Indication: HYPERTENSION
  8. COREG [Concomitant]
     Indication: HYPERTENSION
  9. DIOVAN HCT [Concomitant]
     Indication: HYPERTENSION
  10. KLOR CON [Concomitant]
     Indication: BLOOD POTASSIUM ABNORMAL
  11. LASIX [Concomitant]
     Indication: HYPERTENSION
  12. LASIX [Concomitant]
     Indication: FLUID RETENTION
  13. SIMCOR [Concomitant]
     Indication: BLOOD CHOLESTEROL INCREASED
  14. FOLIC ACID [Concomitant]
     Indication: VITAMIN SUPPLEMENTATION
  15. ADVAIR [Concomitant]
     Indication: ASTHMA
  16. VENTOLIN [Concomitant]
     Indication: ASTHMA
     Dosage: AS NEEDED
  17. SINGULAIR [Concomitant]
     Indication: HYPERSENSITIVITY
  18. VITAMIN D NOS [Concomitant]
     Indication: VITAMIN SUPPLEMENTATION
  19. TRAMADOL [Concomitant]
     Indication: PAIN
     Dosage: AS NEEDED
  20. CICLOPIROX OLAMINE [Concomitant]
     Indication: PRODUCT USED FOR UNKNOWN INDICATION
     Dosage: AS NEEDED
     Route: 061

REACTIONS (10)
  - Prostatomegaly [Not Recovered/Not Resolved]
  - Prostate cancer [Not Recovered/Not Resolved]
  - Upper respiratory tract infection [Not Recovered/Not Resolved]
  - Cough [Not Recovered/Not Resolved]
  - Sinus congestion [Not Recovered/Not Resolved]
  - Arthritis [Recovering/Resolving]
  - Pain [Recovering/Resolving]
  - Wheezing [Not Recovered/Not Resolved]
  - Prostatic specific antigen increased [Unknown]
  - Tuberculin test positive [Unknown]
